FAERS Safety Report 10203992 (Version 1)
Quarter: 2014Q2

REPORT INFORMATION
  Report Type: Spontaneous
  Country: FR (occurrence: FR)
  Receive Date: 20140529
  Receipt Date: 20140529
  Transmission Date: 20141212
  Serious: Yes (Hospitalization)
  Sender: FDA-Public Use
  Company Number: FR-SA-2014SA064730

PATIENT
  Age: 57 Year
  Sex: Male

DRUGS (6)
  1. RIFINAH [Suspect]
     Indication: LATENT TUBERCULOSIS
     Route: 048
     Dates: start: 201401
  2. IMUREL [Suspect]
     Indication: ENTEROCOLITIS HAEMORRHAGIC
     Route: 048
     Dates: start: 201401, end: 20140312
  3. CORTICOSTEROIDS [Concomitant]
     Indication: ENTEROCOLITIS HAEMORRHAGIC
     Dates: start: 201312
  4. BACTRIM [Concomitant]
     Indication: ENTEROCOLITIS HAEMORRHAGIC
     Dates: start: 201312
  5. AZATHIOPRINE [Concomitant]
     Indication: ENTEROCOLITIS HAEMORRHAGIC
     Dates: start: 201401
  6. CICLOSPORIN [Concomitant]
     Indication: ENTEROCOLITIS HAEMORRHAGIC
     Dates: start: 201401, end: 201402

REACTIONS (1)
  - Pancytopenia [Recovered/Resolved]
